FAERS Safety Report 10732615 (Version 1)
Quarter: 2015Q1

REPORT INFORMATION
  Report Type: Spontaneous
  Country: US (occurrence: None)
  Receive Date: 20150121
  Receipt Date: 20150121
  Transmission Date: 20150721
  Serious: Yes (Life-Threatening)
  Sender: FDA-Public Use
  Company Number: NSR_01759_2015

PATIENT
  Age: 24 Year
  Sex: Female

DRUGS (3)
  1. 6-MP (NOT SPECIFIED) [Suspect]
     Active Substance: MERCAPTOPURINE
     Indication: COLITIS ULCERATIVE
  2. ALLOPURINOL. [Suspect]
     Active Substance: ALLOPURINOL
     Indication: COLITIS ULCERATIVE
  3. PREDNISONE. [Concomitant]
     Active Substance: PREDNISONE

REACTIONS (2)
  - Pneumocystis jirovecii pneumonia [None]
  - White blood cell count decreased [None]
